FAERS Safety Report 5411907-0 (Version None)
Quarter: 2007Q3

REPORT INFORMATION
  Report Type: 
  Country: None (occurrence: None)
  Receive Date: 20070802
  Receipt Date: 20070802
  Transmission Date: 20080115
  Serious: Yes (Death)
  Sender: FDA-Public Use
  Company Number: None

PATIENT
  Age: 63 Year
  Sex: Female
  Weight: 64.8644 kg

DRUGS (2)
  1. COMMIT [Suspect]
     Indication: NICOTINE DEPENDENCE
  2. COLLOIDAL SILVER [Suspect]
     Indication: MULTIPLE SCLEROSIS
     Dosage: YEARS

REACTIONS (1)
  - DEATH [None]
